FAERS Safety Report 18346724 (Version 1)
Quarter: 2020Q4

REPORT INFORMATION
  Report Type: Spontaneous
  Country: NO (occurrence: NO)
  Receive Date: 20201005
  Receipt Date: 20201005
  Transmission Date: 20210114
  Serious: Yes (Other)
  Sender: FDA-Public Use
  Company Number: NO-BRISTOL-MYERS SQUIBB COMPANY-BMS-2020-077569

PATIENT
  Age: 32 Year
  Sex: Male
  Weight: 65 kg

DRUGS (6)
  1. XALKORI [Interacting]
     Active Substance: CRIZOTINIB
     Dosage: 250 MILLIGRAM, QD (STOP DATE 2020)
     Route: 048
     Dates: start: 20200630
  2. PREDNISOLONE. [Concomitant]
     Active Substance: PREDNISOLONE
     Indication: PRODUCT USED FOR UNKNOWN INDICATION
     Dosage: 10 MILLIGRAM
     Route: 065
  3. ENTECAVIR. [Suspect]
     Active Substance: ENTECAVIR
     Indication: HEPATITIS B
     Dosage: UNK
     Route: 065
     Dates: start: 20200421, end: 20200805
  4. XALKORI [Interacting]
     Active Substance: CRIZOTINIB
     Dosage: 500 MILLIGRAM, QD (250 MG, 2X/DAY)
     Route: 048
     Dates: start: 20200511, end: 20200629
  5. XALKORI [Interacting]
     Active Substance: CRIZOTINIB
     Indication: NON-SMALL CELL LUNG CANCER STAGE IV
     Dosage: 500 MILLIGRAM, QD (250 MG, 2X/DAY)
     Route: 048
     Dates: start: 20200826
  6. XALKORI [Interacting]
     Active Substance: CRIZOTINIB
     Dosage: 200 MILLIGRAM, CYCLICAL (INTERMITTENT TREATMENT (ONE WEEK ON, ONE WEEK OFF) WITH THE DOSE OF 200 MG
     Route: 048
     Dates: start: 2020, end: 20200819

REACTIONS (20)
  - Blood creatinine increased [Unknown]
  - Neutrophil count increased [Unknown]
  - Blood calcium decreased [Unknown]
  - Serum ferritin increased [Unknown]
  - Hepatotoxicity [Recovering/Resolving]
  - Transferrin decreased [Unknown]
  - Low density lipoprotein decreased [Unknown]
  - Blood cholesterol decreased [Unknown]
  - Blood chloride increased [Unknown]
  - Haematocrit decreased [Unknown]
  - Blood uric acid increased [Unknown]
  - Blood albumin decreased [Unknown]
  - Haemoglobin decreased [Unknown]
  - Platelet count decreased [Unknown]
  - White blood cell count increased [Unknown]
  - Blood lactate dehydrogenase increased [Unknown]
  - Drug interaction [Recovering/Resolving]
  - Lipase increased [Unknown]
  - Vitamin B12 increased [Unknown]
  - Reticulocyte count increased [Unknown]

NARRATIVE: CASE EVENT DATE: 20200511
